FAERS Safety Report 4693400-6 (Version None)
Quarter: 2005Q2

REPORT INFORMATION
  Report Type: 
  Country: None (occurrence: None)
  Receive Date: 20050617
  Receipt Date: 20050609
  Transmission Date: 20051028
  Serious: Yes (Other)
  Sender: FDA-Public Use
  Company Number: PHBS2005BE08377

PATIENT
  Age: 72 Year
  Sex: Female

DRUGS (2)
  1. TAMOXIFEN [Concomitant]
     Dates: start: 20030201
  2. ZOMETA [Suspect]
     Indication: METASTASES TO SPINE
     Dosage: 4 MG, QMO
     Dates: start: 20030201, end: 20050501

REACTIONS (9)
  - ACTINOMYCOSIS [None]
  - ASEPTIC NECROSIS BONE [None]
  - BONE DEBRIDEMENT [None]
  - IMPAIRED HEALING [None]
  - OSTEOMYELITIS [None]
  - OSTEONECROSIS [None]
  - OSTEOSCLEROSIS [None]
  - TOOTH EXTRACTION [None]
  - TOOTH LOSS [None]
